FAERS Safety Report 7931993-3 (Version None)
Quarter: 2011Q4

REPORT INFORMATION
  Report Type: 
  Country: None (occurrence: None)
  Receive Date: 20111121
  Receipt Date: 20110819
  Transmission Date: 20120403
  Serious: No
  Sender: FDA-Public Use
  Company Number: US-BAYER-2011-079376

PATIENT
  Sex: Female

DRUGS (3)
  1. MAGNESIUM HYDROXIDE TAB [Concomitant]
  2. ACTIVIA [Concomitant]
  3. ALEVE (CAPLET) [Suspect]

REACTIONS (6)
  - SENSATION OF HEAVINESS [None]
  - ABDOMINAL DISTENSION [None]
  - UNEVALUABLE EVENT [None]
  - ABDOMINAL PAIN UPPER [None]
  - ABDOMINAL DISCOMFORT [None]
  - NAUSEA [None]
